FAERS Safety Report 9308367 (Version 1)
Quarter: 2013Q2

REPORT INFORMATION
  Report Type: Spontaneous
  Country: IT (occurrence: IT)
  Receive Date: 20130524
  Receipt Date: 20130524
  Transmission Date: 20140414
  Serious: Yes (Hospitalization)
  Sender: FDA-Public Use
  Company Number: IT-GLAXOSMITHKLINE-B0893947A

PATIENT
  Age: 95 Year
  Sex: Female

DRUGS (17)
  1. ARIXTRA [Suspect]
     Indication: PULMONARY EMBOLISM
     Route: 058
     Dates: start: 20130409, end: 20130415
  2. OMEPRAZOLE [Concomitant]
     Dosage: 20MG PER DAY
     Route: 048
  3. UNASYN [Concomitant]
     Route: 042
     Dates: start: 20130405, end: 20130414
  4. CLEXANE [Concomitant]
     Route: 058
     Dates: start: 20130405, end: 20130409
  5. FLUIMUCIL [Concomitant]
     Route: 048
     Dates: start: 20130407, end: 20130409
  6. LASIX [Concomitant]
     Route: 042
  7. CLENIL [Concomitant]
  8. OXIVENT [Concomitant]
     Dosage: 45DROP PER DAY
  9. CIPRALEX [Concomitant]
     Route: 048
  10. XANAX [Concomitant]
     Dosage: 7DROP PER DAY
     Route: 048
  11. HALCION [Concomitant]
     Route: 048
  12. DELTACORTENE [Concomitant]
     Route: 048
  13. LASIX [Concomitant]
     Dates: start: 20130410, end: 20130418
  14. MOVICOL [Concomitant]
     Route: 048
  15. CONTRAMAL [Concomitant]
     Dosage: 60DROP PER DAY
     Route: 048
  16. CLEXANE [Concomitant]
     Route: 058
     Dates: start: 20130416, end: 20130418
  17. URBASON [Concomitant]
     Route: 042
     Dates: start: 20130405, end: 20130410

REACTIONS (4)
  - Anaemia [Recovered/Resolved with Sequelae]
  - Haematoma [Recovered/Resolved with Sequelae]
  - Oedema peripheral [Recovered/Resolved with Sequelae]
  - Oedema [Recovered/Resolved with Sequelae]
